FAERS Safety Report 9010714 (Version 1)
Quarter: 2013Q1

REPORT INFORMATION
  Report Type: Spontaneous
  Country: IT (occurrence: IT)
  Receive Date: 20130109
  Receipt Date: 20130109
  Transmission Date: 20140127
  Serious: Yes (Other)
  Sender: FDA-Public Use
  Company Number: IT-TEVA-378614ISR

PATIENT
  Age: 54 Year
  Sex: Male

DRUGS (9)
  1. FLUOROURACIL [Suspect]
     Indication: COLON CANCER
     Dosage: 704 MILLIGRAM DAILY;
     Route: 042
     Dates: start: 20121206, end: 20121206
  2. FLUOROURACIL [Suspect]
     Dosage: 1056 MILLIGRAM DAILY;
     Route: 042
     Dates: start: 20121207, end: 20121208
  3. AVASTIN [Suspect]
     Indication: COLON CANCER
     Dosage: 350 MILLIGRAM DAILY;
     Route: 042
     Dates: start: 20121206, end: 20121206
  4. CAMPTO [Suspect]
     Indication: COLON CANCER
     Dosage: 316.8 MILLIGRAM DAILY;
     Route: 042
     Dates: start: 20121206, end: 20121206
  5. ONDANSETRON [Concomitant]
     Indication: COLON CANCER
     Dosage: 8 MILLIGRAM DAILY;
     Route: 042
     Dates: start: 20121206, end: 20121206
  6. FELODAY [Concomitant]
     Indication: COLON CANCER
     Dosage: 5 MILLIGRAM DAILY;
     Route: 048
  7. PRITOR [Concomitant]
     Indication: HYPERTENSION
     Dosage: 80 MILLIGRAM DAILY;
     Route: 048
  8. SOLDESAM [Concomitant]
     Indication: COLON CANCER
     Dosage: 8 MILLIGRAM DAILY;
     Route: 042
     Dates: start: 20121206, end: 20121206
  9. RANIDIL [Concomitant]
     Indication: COLON CANCER
     Dosage: 100 MILLIGRAM DAILY; 50 MG/5 ML
     Route: 042
     Dates: start: 20121206, end: 20121206

REACTIONS (11)
  - Diarrhoea [Recovering/Resolving]
  - Hypotension [Recovering/Resolving]
  - Syncope [Recovering/Resolving]
  - Loss of consciousness [Recovering/Resolving]
  - Pain [Recovering/Resolving]
  - Lacrimation increased [Recovering/Resolving]
  - Oedema [Recovering/Resolving]
  - Salivary hypersecretion [Recovering/Resolving]
  - Musculoskeletal chest pain [None]
  - Musculoskeletal pain [None]
  - Periorbital oedema [None]
